FAERS Safety Report 8132451-6 (Version None)
Quarter: 2012Q1

REPORT INFORMATION
  Report Type: 
  Country: None (occurrence: None)
  Receive Date: 20120207
  Receipt Date: 20120124
  Transmission Date: 20120608
  Serious: Yes (Life-Threatening, Hospitalization, Other)
  Sender: FDA-Public Use
  Company Number: 2012MA001350

PATIENT
  Age: 73 Year
  Sex: Female

DRUGS (1)
  1. DICLOFENAC SODIUM [Suspect]
     Dosage: 12.5 MG;TID
     Dates: start: 20071204, end: 20071205

REACTIONS (4)
  - ABDOMINAL DISTENSION [None]
  - INFECTIOUS PERITONITIS [None]
  - GASTRIC PERFORATION [None]
  - INCISIONAL HERNIA [None]
